FAERS Safety Report 7810885-4 (Version None)
Quarter: 2011Q4

REPORT INFORMATION
  Report Type: 
  Country: None (occurrence: None)
  Receive Date: 20111013
  Receipt Date: 20111003
  Transmission Date: 20120403
  Serious: Yes (Other)
  Sender: FDA-Public Use
  Company Number: US-JNJFOC-20111001573

PATIENT
  Sex: Female
  Weight: 74.84 kg

DRUGS (1)
  1. SIMPONI [Suspect]
     Indication: PSORIATIC ARTHROPATHY
     Route: 058
     Dates: start: 20110501

REACTIONS (5)
  - DEVICE FAILURE [None]
  - DRUG DOSE OMISSION [None]
  - PSORIASIS [None]
  - BRONCHITIS [None]
  - PALPITATIONS [None]
